FAERS Safety Report 16544621 (Version 1)
Quarter: 2019Q3

REPORT INFORMATION
  Report Type: Spontaneous
  Country: US (occurrence: US)
  Receive Date: 20190708
  Receipt Date: 20190708
  Transmission Date: 20191004
  Serious: Yes (Hospitalization)
  Sender: FDA-Public Use
  Company Number: None

PATIENT
  Age: 17 Year
  Sex: Male

DRUGS (21)
  1. ENOXAPARIN [Concomitant]
     Active Substance: ENOXAPARIN
  2. ATENOLOL. [Concomitant]
     Active Substance: ATENOLOL
  3. METHLYPRED [Concomitant]
  4. QVAR [Concomitant]
     Active Substance: BECLOMETHASONE DIPROPIONATE
  5. RIZATRIPTAN. [Concomitant]
     Active Substance: RIZATRIPTAN
  6. ZONEGRAN [Concomitant]
     Active Substance: ZONISAMIDE
  7. ZYRTEC [Concomitant]
     Active Substance: CETIRIZINE HYDROCHLORIDE
  8. TRILEPTAL [Concomitant]
     Active Substance: OXCARBAZEPINE
  9. CLONAZEPAM. [Concomitant]
     Active Substance: CLONAZEPAM
  10. PREDNISONE. [Concomitant]
     Active Substance: PREDNISONE
  11. FLOVENT [Concomitant]
     Active Substance: FLUTICASONE PROPIONATE
  12. FLUTISCASONE [Concomitant]
  13. OXYCODONE [Concomitant]
     Active Substance: OXYCODONE
  14. PROPRANOLOL [Concomitant]
     Active Substance: PROPRANOLOL HYDROCHLORIDE
  15. VIMPAT [Concomitant]
     Active Substance: LACOSAMIDE
  16. AFINITOR [Suspect]
     Active Substance: EVEROLIMUS
     Indication: RHINITIS
     Route: 048
  17. FLONASE [Concomitant]
     Active Substance: FLUTICASONE PROPIONATE
  18. OXCARBAZEPINE. [Concomitant]
     Active Substance: OXCARBAZEPINE
  19. PATANASE [Concomitant]
     Active Substance: OLOPATADINE HYDROCHLORIDE
  20. XOPENEX [Concomitant]
     Active Substance: LEVALBUTEROL HYDROCHLORIDE
  21. ZANTAC [Concomitant]
     Active Substance: RANITIDINE HYDROCHLORIDE

REACTIONS (1)
  - Oral pain [None]

NARRATIVE: CASE EVENT DATE: 20190705
